FAERS Safety Report 6286698-4 (Version None)
Quarter: 2009Q3

REPORT INFORMATION
  Report Type: 
  Country: None (occurrence: None)
  Receive Date: 20090728
  Receipt Date: 20090722
  Transmission Date: 20100115
  Serious: Yes (Life-Threatening, Hospitalization)
  Sender: FDA-Public Use
  Company Number: CH-CELGENEUS-151-C5013-09071609

PATIENT
  Sex: Male
  Weight: 67.5 kg

DRUGS (19)
  1. CC-5013 [Suspect]
     Indication: MULTIPLE MYELOMA
     Route: 048
     Dates: start: 20090609
  2. CC-5013 [Suspect]
     Route: 048
     Dates: start: 20090707, end: 20090721
  3. DEXAMETHASONE [Suspect]
     Indication: MULTIPLE MYELOMA
     Route: 065
     Dates: start: 20090609
  4. DEXAMETHASONE [Suspect]
     Route: 065
     Dates: start: 20090707, end: 20090721
  5. OXYCONTIN [Concomitant]
     Indication: BACK PAIN
     Dates: start: 20090716
  6. OMIX [Concomitant]
     Route: 048
  7. DAFALGAN [Concomitant]
     Indication: BACK PAIN
     Route: 048
     Dates: start: 20090428, end: 20090605
  8. ZYLORIC [Concomitant]
     Indication: PROPHYLAXIS
     Route: 048
     Dates: start: 19990101
  9. RENITEN [Concomitant]
     Indication: HYPERTENSIVE HEART DISEASE
     Route: 048
     Dates: start: 20000101
  10. NEXIUM [Concomitant]
     Indication: PROPHYLAXIS
     Route: 048
     Dates: start: 20090507
  11. TRAMAL RETARD [Concomitant]
     Indication: BACK PAIN
     Route: 048
     Dates: start: 20090526
  12. RECORMON [Concomitant]
     Route: 058
     Dates: start: 20090506
  13. TEMESTA [Concomitant]
     Indication: INSOMNIA
     Route: 048
     Dates: start: 20090609
  14. ZOFRAN [Concomitant]
     Indication: NAUSEA
     Route: 060
     Dates: start: 20090609
  15. FRAGMIN [Concomitant]
     Indication: VENOUS THROMBOSIS
     Route: 058
     Dates: start: 20090609, end: 20090610
  16. FRAGMIN [Concomitant]
     Route: 058
     Dates: start: 20090611, end: 20090624
  17. MARCUMAR [Concomitant]
     Indication: VENOUS THROMBOSIS
     Route: 048
     Dates: start: 20090609
  18. ZOMETA [Concomitant]
     Indication: DRUG USE FOR UNKNOWN INDICATION
     Route: 051
     Dates: start: 20090714
  19. CELEBREX [Concomitant]
     Indication: BACK PAIN
     Route: 048
     Dates: start: 20090714

REACTIONS (1)
  - LIVER DISORDER [None]
